FAERS Safety Report 4297115-8 (Version None)
Quarter: 2004Q1

REPORT INFORMATION
  Report Type: 
  Country: None (occurrence: None)
  Receive Date: 20040213
  Receipt Date: 20040202
  Transmission Date: 20041129
  Serious: Yes (Other)
  Sender: FDA-Public Use
  Company Number: 2004007148

PATIENT
  Age: 12 Year
  Sex: Male

DRUGS (1)
  1. DILANTIN [Suspect]
     Indication: CONVULSION

REACTIONS (4)
  - AGITATION [None]
  - CONDITION AGGRAVATED [None]
  - CONVULSION [None]
  - DRUG WITHDRAWAL SYNDROME [None]
